FAERS Safety Report 15984984 (Version 3)
Quarter: 2021Q4

REPORT INFORMATION
  Report Type: Spontaneous
  Country: US (occurrence: US)
  Receive Date: 20190220
  Receipt Date: 20211027
  Transmission Date: 20220303
  Serious: Yes (Disabling, Other)
  Sender: FDA-Public Use
  Company Number: US-TEVA-2019-US-1014280

PATIENT
  Age: 50 Year
  Sex: Female
  Weight: 64 kg

DRUGS (17)
  1. DOCETAXEL [Suspect]
     Active Substance: DOCETAXEL
     Indication: Breast cancer female
     Dosage: DOSAGE: 154MG, NUMBER OF CYCLE - 3, FREQUENCY: EVERY 3 WEEKS
     Route: 042
     Dates: start: 20141030, end: 20141217
  2. DOCETAXEL [Suspect]
     Active Substance: DOCETAXEL
     Indication: Breast cancer female
     Dosage: DOSAGE: 154MG, NUMBER OF CYCLE - 3, FREQUENCY: EVERY 3 WEEKS
     Route: 042
     Dates: start: 20141030, end: 20141217
  3. DOCETAXEL [Suspect]
     Active Substance: DOCETAXEL
     Dosage: DOSAGE: 154MG, NUMBER OF CYCLE - 3, FREQUENCY: EVERY 3 WEEKS
     Route: 042
     Dates: start: 20141030, end: 20141217
  4. DOCETAXEL [Suspect]
     Active Substance: DOCETAXEL
     Indication: Breast cancer female
     Dosage: DOSAGE: 154MG, NUMBER OF CYCLE - 3, FREQUENCY: EVERY 3 WEEKS
     Route: 042
     Dates: start: 20141030, end: 20141217
  5. DOCETAXEL [Suspect]
     Active Substance: DOCETAXEL
     Indication: Breast cancer female
     Dosage: DOSAGE: 154MG, NUMBER OF CYCLE - 3, FREQUENCY: EVERY 3 WEEKS
     Route: 042
     Dates: start: 20141030, end: 20141217
  6. DOCETAXEL [Suspect]
     Active Substance: DOCETAXEL
     Dosage: DOSAGE: 154MG, NUMBER OF CYCLE - 3, FREQUENCY: EVERY 3 WEEKS
     Route: 042
     Dates: start: 20141030, end: 20141217
  7. DOCETAXEL [Suspect]
     Active Substance: DOCETAXEL
     Indication: Breast cancer female
     Dosage: DOSAGE: 154MG, NUMBER OF CYCLE - 3, FREQUENCY: EVERY 3 WEEKS
     Route: 042
     Dates: start: 20141030, end: 20141217
  8. DOCETAXEL [Suspect]
     Active Substance: DOCETAXEL
     Dosage: DOSAGE: 154MG, NUMBER OF CYCLE - 3, FREQUENCY: EVERY 3 WEEKS
     Route: 042
     Dates: start: 20141030, end: 20141217
  9. ACETAMINOPHEN\OXYCODONE HYDROCHLORIDE [Concomitant]
     Active Substance: ACETAMINOPHEN\OXYCODONE HYDROCHLORIDE
     Indication: Pain
     Dosage: 10/325MG
     Route: 048
  10. ALBUTEROL SULFATE [Concomitant]
     Active Substance: ALBUTEROL SULFATE
     Indication: Wheezing
     Dosage: INHALE 2 PUFFS EVERY 6 HOURS
  11. AMMONIUM LACTATE [Concomitant]
     Active Substance: AMMONIUM LACTATE
     Indication: Dry skin
     Dosage: APPLY 2 BOTH FEET, BID. 12% LOTION
  12. GABAPENTIN [Concomitant]
     Active Substance: GABAPENTIN
     Indication: Neuralgia
     Dosage: 6 DOSAGE FORMS DAILY;
     Route: 048
  13. OXYCODONE [Concomitant]
     Active Substance: OXYCODONE
     Dates: start: 20130101
  14. TRIAMCINOLONE [Concomitant]
     Active Substance: TRIAMCINOLONE
     Indication: Dermatitis atopic
     Dosage: 0.025% OINTMENT, TWICE DAILY
  15. ZOLPIDEM [Concomitant]
     Active Substance: ZOLPIDEM TARTRATE
     Indication: Insomnia
     Route: 048
  16. ZOLPIDEM [Concomitant]
     Active Substance: ZOLPIDEM TARTRATE
     Route: 048
  17. VITAMINS [Concomitant]
     Active Substance: VITAMINS
     Dosage: 1 DOSAGE FORMS DAILY;
     Route: 048

REACTIONS (6)
  - Alopecia totalis [Not Recovered/Not Resolved]
  - Madarosis [Not Recovered/Not Resolved]
  - Neutropenia [Unknown]
  - Hair texture abnormal [Not Recovered/Not Resolved]
  - Hair colour changes [Not Recovered/Not Resolved]
  - Oedema peripheral [Recovering/Resolving]

NARRATIVE: CASE EVENT DATE: 20140101
